FAERS Safety Report 6195544-9 (Version None)
Quarter: 2009Q2

REPORT INFORMATION
  Report Type: 
  Country: None (occurrence: None)
  Receive Date: 20090519
  Receipt Date: 20090513
  Transmission Date: 20091009
  Serious: Yes (Other)
  Sender: FDA-Public Use
  Company Number: PHEH2009US04776

PATIENT
  Sex: Male

DRUGS (4)
  1. TEKTURNA [Suspect]
     Dosage: 300 MG DAILY
     Route: 048
  2. CISPLATIN [Suspect]
     Indication: NEOPLASM MALIGNANT
     Dosage: UNK, UNK
  3. ETOPOPHOS PRESERVATIVE FREE [Suspect]
     Indication: NEOPLASM MALIGNANT
     Dosage: UNK, UNK
  4. RADIATION THERAPY [Suspect]
     Indication: NEOPLASM MALIGNANT
     Dosage: UNK

REACTIONS (2)
  - BLOOD PRESSURE DECREASED [None]
  - NEOPLASM MALIGNANT [None]
